FAERS Safety Report 5109489-6 (Version None)
Quarter: 2006Q3

REPORT INFORMATION
  Report Type: 
  Country: None (occurrence: None)
  Receive Date: 20060918
  Receipt Date: 20060829
  Transmission Date: 20061208
  Serious: Yes (Other)
  Sender: FDA-Public Use
  Company Number: 2006100758

PATIENT
  Age: 59 Year
  Sex: Male
  Weight: 107 kg

DRUGS (8)
  1. LYRICA [Suspect]
     Indication: NEURALGIA
     Dosage: 225 MG (75 MG, 3 IN 1 D), ORAL
     Route: 048
     Dates: start: 20060630
  2. NEURONTIN [Suspect]
     Indication: PHANTOM PAIN
     Dosage: 600 MG (300 MG, 2 IN 1 D), ORAL
     Route: 048
     Dates: end: 20060630
  3. TRANXENE [Suspect]
     Indication: ANXIETY DISORDER
     Dosage: 30 MG (10 MG, 3 IN 1 D), ORAL
     Route: 048
     Dates: start: 20000101
  4. ATHYMIL (MIANSERIN HYDROCHLORIDE) [Suspect]
     Indication: DEPRESSION
     Dosage: 90 MG (45 MG, 2 IN 1 D), ORAL
     Route: 048
  5. ANAFRANIL [Suspect]
     Indication: DEPRESSION
     Dosage: 50 MG (25 MG, 2 IN 1 D), ORAL
     Route: 048
     Dates: start: 20000101
  6. IMOVANE (ZOPICLONE) [Concomitant]
  7. ZOCOR [Concomitant]
  8. METOPROLOL TARTRATE [Concomitant]

REACTIONS (3)
  - DRUG INEFFECTIVE [None]
  - DRUG INTERACTION [None]
  - SOMNOLENCE [None]
